FAERS Safety Report 5087521-6 (Version None)
Quarter: 2006Q3

REPORT INFORMATION
  Report Type: 
  Country: None (occurrence: None)
  Receive Date: 20060824
  Receipt Date: 20060822
  Transmission Date: 20061208
  Serious: Yes (Congenital Anomaly, Other)
  Sender: FDA-Public Use
  Company Number: US-GLAXOSMITHKLINE-A0617717A

PATIENT
  Sex: Male
  Weight: 2.5 kg

DRUGS (2)
  1. LAMICTAL [Suspect]
     Indication: EPILEPSY
  2. KEPPRA [Concomitant]
     Indication: EPILEPSY

REACTIONS (3)
  - DRUG EXPOSURE DURING PREGNANCY [None]
  - INTESTINAL MALROTATION [None]
  - VOMITING [None]
